FAERS Safety Report 21547963 (Version 1)
Quarter: 2022Q4

REPORT INFORMATION
  Report Type: Report from Study
  Country: IT (occurrence: IT)
  Receive Date: 20221103
  Receipt Date: 20221103
  Transmission Date: 20230112
  Serious: Yes (Other)
  Sender: FDA-Public Use
  Company Number: IT-SUN PHARMACEUTICAL INDUSTRIES LTD-2022RR-362080

PATIENT
  Age: 5 Decade

DRUGS (7)
  1. IRINOTECAN [Suspect]
     Active Substance: IRINOTECAN
     Indication: Adenocarcinoma of colon
     Dosage: 180 MG/MQ OVER 90 MIN DAY 1
     Route: 065
     Dates: start: 2020
  2. OXALIPLATIN [Suspect]
     Active Substance: OXALIPLATIN
     Indication: Adenocarcinoma of colon
     Dosage: 85 MG/MQ OVER 2 H DAY 1
     Route: 065
     Dates: start: 2019
  3. LEUCOVORIN CALCIUM [Suspect]
     Active Substance: LEUCOVORIN CALCIUM
     Indication: Adenocarcinoma of colon
     Dosage: 200 MG/MQ OVER 2 H DAY 1
     Route: 065
     Dates: start: 2019
  4. LEUCOVORIN CALCIUM [Suspect]
     Active Substance: LEUCOVORIN CALCIUM
     Dosage: 200 MG/MQ OVER 2 H DAY 1-2
     Route: 065
     Dates: start: 2020
  5. FLUOROURACIL [Suspect]
     Active Substance: FLUOROURACIL
     Indication: Adenocarcinoma of colon
     Dosage: 2400 MG/MQ OVER 48 H
     Route: 065
     Dates: start: 2019
  6. FLUOROURACIL [Suspect]
     Active Substance: FLUOROURACIL
     Dosage: 2400 MG/MQ 48 H DAY 1 EVERY 2 WEEKS
     Route: 065
     Dates: start: 2020
  7. PANITUMUMAB [Suspect]
     Active Substance: PANITUMUMAB
     Indication: Adenocarcinoma of colon
     Dosage: 6 MILLIGRAM/KILOGRAM, EVERY 2 WEEKS
     Route: 065
     Dates: start: 2019

REACTIONS (3)
  - Disease progression [Unknown]
  - Performance status decreased [Unknown]
  - Diarrhoea [Unknown]
